FAERS Safety Report 18848980 (Version 1)
Quarter: 2021Q1

REPORT INFORMATION
  Report Type: Spontaneous
  Country: US (occurrence: US)
  Receive Date: 20210204
  Receipt Date: 20210204
  Transmission Date: 20210419
  Serious: No
  Sender: FDA-Public Use
  Company Number: US-MYLANLABS-2021M1005165

PATIENT
  Sex: Female
  Weight: 50 kg

DRUGS (1)
  1. VALACYCLOVIR [Suspect]
     Active Substance: VALACYCLOVIR HYDROCHLORIDE
     Indication: GENITAL HERPES
     Dosage: UNK
     Route: 048
     Dates: end: 20210125

REACTIONS (1)
  - Abdominal discomfort [Not Recovered/Not Resolved]
